FAERS Safety Report 4865461-2 (Version None)
Quarter: 2005Q4

REPORT INFORMATION
  Report Type: 
  Country: None (occurrence: None)
  Receive Date: 20051223
  Receipt Date: 20051117
  Transmission Date: 20060501
  Serious: Yes (Other)
  Sender: FDA-Public Use
  Company Number: JP-ROCHE-425605

PATIENT
  Age: 70 Year
  Sex: Male
  Weight: 57 kg

DRUGS (3)
  1. PEGASYS [Suspect]
     Indication: HEPATITIS C
     Route: 058
     Dates: start: 20050518, end: 20051019
  2. LENDORMIN [Concomitant]
     Route: 048
     Dates: start: 20050518
  3. MYSLEE [Concomitant]
     Route: 048
     Dates: start: 20050518

REACTIONS (6)
  - ARTHRALGIA [None]
  - AUTOIMMUNE DISORDER [None]
  - IMPAIRED SELF-CARE [None]
  - OEDEMA PERIPHERAL [None]
  - PAIN IN EXTREMITY [None]
  - RHEUMATOID FACTOR POSITIVE [None]
